FAERS Safety Report 15389560 (Version 2)
Quarter: 2018Q3

REPORT INFORMATION
  Report Type: Spontaneous
  Country: US (occurrence: US)
  Receive Date: 20180917
  Receipt Date: 20180917
  Transmission Date: 20181010
  Serious: No
  Sender: FDA-Public Use
  Company Number: US-LUPIN PHARMACEUTICALS INC.-2018-01301

PATIENT
  Sex: Female

DRUGS (1)
  1. CEFUROXIME AXETIL TABLETS USP, 250 MG [Suspect]
     Active Substance: CEFUROXIME AXETIL
     Indication: SINUSITIS
     Dosage: UNK
     Route: 065

REACTIONS (6)
  - Product taste abnormal [Unknown]
  - Retching [Unknown]
  - Circumstance or information capable of leading to medication error [Unknown]
  - Dysphagia [Unknown]
  - Malaise [Unknown]
  - Product coating issue [Unknown]
